FAERS Safety Report 7911086-1 (Version None)
Quarter: 2011Q4

REPORT INFORMATION
  Report Type: 
  Country: None (occurrence: None)
  Receive Date: 20111114
  Receipt Date: 20111101
  Transmission Date: 20120403
  Serious: Yes (Hospitalization)
  Sender: FDA-Public Use
  Company Number: US-RANBAXY-2011US-50278

PATIENT
  Age: 32 Year
  Sex: Female

DRUGS (4)
  1. AMLODIPINE [Suspect]
     Indication: PRODUCT USED FOR UNKNOWN INDICATION
     Dosage: UNK, UNK
     Route: 048
  2. INSULIN [Suspect]
     Indication: CARDIOGENIC SHOCK
     Dosage: 80 IU
     Route: 042
  3. METOPROLOL [Suspect]
     Indication: PRODUCT USED FOR UNKNOWN INDICATION
     Dosage: UNK
     Route: 048
  4. INSULIN [Suspect]
     Dosage: 160-2100 IU/H
     Route: 042

REACTIONS (5)
  - MEDICATION ERROR [None]
  - MULTIPLE DRUG OVERDOSE [None]
  - INCORRECT DOSE ADMINISTERED [None]
  - HYPOGLYCAEMIA [None]
  - CARDIOGENIC SHOCK [None]
